FAERS Safety Report 8299685-1 (Version None)
Quarter: 2012Q2

REPORT INFORMATION
  Report Type: 
  Country: None (occurrence: None)
  Receive Date: 20120419
  Receipt Date: 20120413
  Transmission Date: 20120825
  Serious: Yes (Death, Other)
  Sender: FDA-Public Use
  Company Number: FI-ELI_LILLY_AND_COMPANY-FI201112005359

PATIENT
  Sex: Male

DRUGS (12)
  1. PREDNISOLONE [Concomitant]
     Indication: IMMUNOSUPPRESSION
     Dosage: 5 MG, QD
  2. XALATAN [Concomitant]
     Indication: GLAUCOMA
  3. CRAMPITON [Concomitant]
     Indication: MUSCLE SPASMS
  4. CORTISONE ACETATE [Concomitant]
     Indication: PULMONARY FIBROSIS
  5. RAMIPRIL [Concomitant]
     Indication: VASODILATION PROCEDURE
  6. ACETAMINOPHEN [Concomitant]
     Indication: PAIN
  7. FORTEO [Suspect]
     Indication: OSTEOPOROSIS
     Dosage: 20 UG, QD
     Route: 058
  8. AZATHIOPRINE [Concomitant]
     Indication: AUTOIMMUNE HEPATITIS
  9. CALCICHEW D3 [Concomitant]
     Indication: VITAMIN SUPPLEMENTATION
     Dosage: UNK
  10. INSULIN [Concomitant]
     Indication: DIABETES MELLITUS
  11. PANTOPRAZOLE [Concomitant]
     Indication: GASTRIC DISORDER
     Dosage: 40 MG, QD
  12. ZOLPIDEM TARTRATE [Concomitant]
     Indication: SLEEP DISORDER
     Dosage: 10 MG, UNK

REACTIONS (6)
  - DEATH [None]
  - LOSS OF CONSCIOUSNESS [None]
  - MYELODYSPLASTIC SYNDROME [None]
  - THROMBOCYTOPENIA [None]
  - MYELOFIBROSIS [None]
  - PULMONARY FIBROSIS [None]
